FAERS Safety Report 20258375 (Version 2)
Quarter: 2022Q1

REPORT INFORMATION
  Report Type: Spontaneous
  Country: US (occurrence: US)
  Receive Date: 20211230
  Receipt Date: 20220106
  Transmission Date: 20220423
  Serious: Yes (Other)
  Sender: FDA-Public Use
  Company Number: US-TAKEDA-2021TUS054433

PATIENT
  Age: 48 Year
  Sex: Male

DRUGS (26)
  1. DEXILANT [Suspect]
     Active Substance: DEXLANSOPRAZOLE
     Indication: Gastrooesophageal reflux disease
     Dosage: UNK
     Route: 048
     Dates: start: 1997, end: 2020
  2. DEXILANT [Suspect]
     Active Substance: DEXLANSOPRAZOLE
     Dosage: 60 MILLIGRAM
     Dates: start: 20000211, end: 20000718
  3. DEXILANT [Suspect]
     Active Substance: DEXLANSOPRAZOLE
     Dosage: 60 MILLIGRAM
     Dates: start: 20180829, end: 20200718
  4. DEXILANT [Suspect]
     Active Substance: DEXLANSOPRAZOLE
     Dosage: UNK
  5. NEXIUM [Suspect]
     Active Substance: ESOMEPRAZOLE MAGNESIUM
     Indication: Gastrooesophageal reflux disease
     Dosage: UNK
     Route: 048
     Dates: start: 1997, end: 2020
  6. NEXIUM [Suspect]
     Active Substance: ESOMEPRAZOLE MAGNESIUM
     Dosage: 40 MILLIGRAM
     Dates: start: 20040419, end: 20060515
  7. NEXIUM [Suspect]
     Active Substance: ESOMEPRAZOLE MAGNESIUM
     Dosage: 40 MILLIGRAM
     Dates: start: 20080312
  8. NEXIUM [Suspect]
     Active Substance: ESOMEPRAZOLE MAGNESIUM
     Dosage: 40 MILLIGRAM
     Dates: start: 20120611, end: 20130307
  9. NEXIUM [Suspect]
     Active Substance: ESOMEPRAZOLE MAGNESIUM
     Dosage: 40 MILLIGRAM
     Dates: start: 20130521, end: 20140331
  10. NEXIUM [Suspect]
     Active Substance: ESOMEPRAZOLE MAGNESIUM
     Dosage: 40 MILLIGRAM
     Dates: start: 20140602, end: 20150518
  11. NEXIUM [Suspect]
     Active Substance: ESOMEPRAZOLE MAGNESIUM
     Dosage: 40 MILLIGRAM
     Dates: start: 20161220
  12. NEXIUM [Suspect]
     Active Substance: ESOMEPRAZOLE MAGNESIUM
     Dosage: 40 MILLIGRAM
     Dates: start: 20170116
  13. NEXIUM [Suspect]
     Active Substance: ESOMEPRAZOLE MAGNESIUM
     Dosage: 40 MILLIGRAM
     Dates: start: 20170213, end: 20170223
  14. ESOMEPRAZOLE [Suspect]
     Active Substance: ESOMEPRAZOLE
     Indication: Gastrooesophageal reflux disease
     Dosage: 40 MILLIGRAM
     Dates: start: 20180730
  15. PRILOSEC [Suspect]
     Active Substance: OMEPRAZOLE MAGNESIUM
     Indication: Gastrooesophageal reflux disease
     Dosage: UNK
     Route: 048
     Dates: start: 1997, end: 2020
  16. PRILOSEC [Suspect]
     Active Substance: OMEPRAZOLE MAGNESIUM
     Dosage: 20 MILLIGRAM
     Dates: start: 19980805, end: 19981224
  17. PRILOSEC [Suspect]
     Active Substance: OMEPRAZOLE MAGNESIUM
     Dosage: 20 MILLIGRAM
     Dates: start: 20000216, end: 20020211
  18. PRILOSEC [Suspect]
     Active Substance: OMEPRAZOLE MAGNESIUM
     Dosage: 20 MILLIGRAM
     Dates: start: 20160722, end: 20161101
  19. OMEPRAZOLE [Suspect]
     Active Substance: OMEPRAZOLE
     Indication: Gastrooesophageal reflux disease
     Dosage: 20 MILLIGRAM
     Route: 048
     Dates: start: 20050610, end: 20050810
  20. PRILOSEC OTC [Suspect]
     Active Substance: OMEPRAZOLE MAGNESIUM
     Indication: Gastrooesophageal reflux disease
     Dosage: 20 MG
     Dates: start: 20050610, end: 20050810
  21. PANTOPRAZOLE [Suspect]
     Active Substance: PANTOPRAZOLE
     Indication: Gastrooesophageal reflux disease
     Dosage: UNK
     Dates: start: 20160826
  22. FAMOTIDINE [Concomitant]
     Active Substance: FAMOTIDINE
     Dosage: UNK
     Dates: start: 2009, end: 2010
  23. ZANTAC 150 (RANITIDINE HYDROCHLORIDE) [Concomitant]
     Active Substance: RANITIDINE HYDROCHLORIDE
     Dosage: UNK
     Dates: start: 2005
  24. ZANTAC 150 (RANITIDINE HYDROCHLORIDE) [Concomitant]
     Active Substance: RANITIDINE HYDROCHLORIDE
     Dosage: UNK
     Dates: start: 2016
  25. RANITIDINE [Concomitant]
     Active Substance: RANITIDINE
     Dosage: UNK
     Dates: start: 2005
  26. RANITIDINE [Concomitant]
     Active Substance: RANITIDINE
     Dosage: UNK
     Dates: start: 2016

REACTIONS (2)
  - Chronic kidney disease [Not Recovered/Not Resolved]
  - Renal cancer [Unknown]

NARRATIVE: CASE EVENT DATE: 20190812
